FAERS Safety Report 5516271-4 (Version None)
Quarter: 2007Q4

REPORT INFORMATION
  Report Type: 
  Country: None (occurrence: None)
  Receive Date: 20071114
  Receipt Date: 20070117
  Transmission Date: 20080405
  Serious: No
  Sender: FDA-Public Use
  Company Number: A0635831A

PATIENT
  Age: 49 Year
  Sex: Male

DRUGS (1)
  1. COMMIT [Suspect]
     Dates: start: 20070115

REACTIONS (4)
  - DECREASED APPETITE [None]
  - DIARRHOEA [None]
  - EXPIRED DRUG ADMINISTERED [None]
  - NAUSEA [None]
